FAERS Safety Report 24555655 (Version 1)
Quarter: 2024Q4

REPORT INFORMATION
  Report Type: Spontaneous
  Country: US (occurrence: None)
  Receive Date: 20241025
  Receipt Date: 20241025
  Transmission Date: 20250115
  Serious: No
  Sender: Public
  Company Number: None

PATIENT
  Age: 94 Year
  Sex: Male
  Weight: 81.45 kg

DRUGS (1)
  1. XTANDI [Suspect]
     Active Substance: ENZALUTAMIDE
     Dosage: 160 MG/MG DAILY ORAL ?
     Route: 048
     Dates: start: 20241013

REACTIONS (1)
  - Fatigue [None]

NARRATIVE: CASE EVENT DATE: 20241025
